FAERS Safety Report 8971976 (Version 1)
Quarter: 2012Q4

REPORT INFORMATION
  Report Type: 
  Country: US (occurrence: US)
  Receive Date: 20121218
  Receipt Date: 20121218
  Transmission Date: 20130627
  Serious: No
  Sender: FDA-Public Use
  Company Number: US-PFIZER INC-2012309679

PATIENT
  Age: 71 Year
  Sex: Male

DRUGS (2)
  1. LIPITOR [Suspect]
     Indication: DRUG USE FOR UNKNOWN INDICATION
     Dosage: UNK
  2. REVLIMID [Suspect]
     Indication: MALIGNANT NEOPLASM OF BLADDER
     Dosage: 10 mg, 1x/day
     Route: 048
     Dates: start: 201208

REACTIONS (1)
  - Liver function test abnormal [Unknown]
